FAERS Safety Report 6835301-0 (Version None)
Quarter: 2010Q3

REPORT INFORMATION
  Report Type: 
  Country: None (occurrence: None)
  Receive Date: 20100713
  Receipt Date: 20100707
  Transmission Date: 20110219
  Serious: Yes (Other)
  Sender: FDA-Public Use
  Company Number: US-JNJFOC-20100306929

PATIENT
  Sex: Female
  Weight: 79.38 kg

DRUGS (6)
  1. REMICADE [Suspect]
     Indication: CROHN'S DISEASE
     Dosage: WEEK 12
     Route: 042
  2. REMICADE [Suspect]
     Dosage: WEEK 0, 2, AND 6
     Route: 042
  3. ASACOL [Concomitant]
  4. MERCAPTOPURINE [Concomitant]
  5. PREDNISONE [Concomitant]
  6. TYLENOL (CAPLET) [Concomitant]

REACTIONS (4)
  - CROHN'S DISEASE [None]
  - MACULAR OEDEMA [None]
  - OPTIC NEURITIS [None]
  - OPTIC NEUROPATHY [None]
